FAERS Safety Report 7747374-1 (Version None)
Quarter: 2011Q3

REPORT INFORMATION
  Report Type: 
  Country: None (occurrence: None)
  Receive Date: 20110913
  Receipt Date: 20110902
  Transmission Date: 20111222
  Serious: Yes (Death, Hospitalization)
  Sender: FDA-Public Use
  Company Number: US-GLAXOSMITHKLINE-A0943223A

PATIENT
  Age: 41 Year
  Sex: Female

DRUGS (1)
  1. PROMACTA [Suspect]
     Indication: PRODUCT USED FOR UNKNOWN INDICATION
     Dates: start: 20110818, end: 20110827

REACTIONS (3)
  - PLATELET COUNT DECREASED [None]
  - DRUG INEFFECTIVE [None]
  - CERVIX CARCINOMA [None]
